FAERS Safety Report 8840933 (Version 1)
Quarter: 2012Q4

REPORT INFORMATION
  Report Type: 
  Country: US (occurrence: US)
  Receive Date: 20121015
  Receipt Date: 20121015
  Transmission Date: 20130627
  Serious: Yes (Hospitalization, Other)
  Sender: FDA-Public Use
  Company Number: US-ROCHE-1111138

PATIENT
  Sex: Female
  Weight: 35.6 kg

DRUGS (1)
  1. NUTROPIN [Suspect]
     Indication: LIVER DISORDER
     Route: 050

REACTIONS (2)
  - Colitis [Unknown]
  - Autoimmune hepatitis [Unknown]
